FAERS Safety Report 5534251-X (Version None)
Quarter: 2007Q4

REPORT INFORMATION
  Report Type: 
  Country: None (occurrence: None)
  Receive Date: 20071130
  Receipt Date: 20071114
  Transmission Date: 20080405
  Serious: Yes (Hospitalization, Other)
  Sender: FDA-Public Use
  Company Number: JPI-C-002467

PATIENT
  Age: 55 Year
  Sex: Female
  Weight: 80.2867 kg

DRUGS (7)
  1. SODIUM OXYBATE(OXYBATE SODIUM)(500 MILLIGRAM/MILLILITERS, SOLUTION)(SO [Suspect]
     Indication: NARCOLEPSY
     Dosage: ORAL, 9 GM (4.5 GM,2 IN 1 D), ORAL
     Route: 048
     Dates: start: 20020101, end: 20060301
  2. SODIUM OXYBATE(OXYBATE SODIUM)(500 MILLIGRAM/MILLILITERS, SOLUTION)(SO [Suspect]
     Indication: NARCOLEPSY
     Dosage: ORAL, 9 GM (4.5 GM,2 IN 1 D), ORAL
     Route: 048
     Dates: start: 20050301
  3. APO-METHYLPHENIDATE (METHYLPHENIDATE HYDROCHLORIDE) [Concomitant]
  4. PMS-METHYLPHENIDATE (METHYLPHENIDATE HYDROCHLORIDE) [Concomitant]
  5. CELECOXIB [Concomitant]
  6. SALBUTEROL (SALBUTAMOL)(INHALANT ) [Concomitant]
  7. BUDESONIDE W/FORMOTEROL FUMARATE DIHYDRATE (BUDESONIDE W/FORMOTEROL FU [Concomitant]

REACTIONS (6)
  - ARTHRALGIA [None]
  - BREAST CANCER METASTATIC [None]
  - METASTASES TO LYMPH NODES [None]
  - MUSCULOSKELETAL DISORDER [None]
  - PAIN IN EXTREMITY [None]
  - PATHOLOGICAL FRACTURE [None]
